FAERS Safety Report 17200534 (Version 1)
Quarter: 2019Q4

REPORT INFORMATION
  Report Type: Spontaneous
  Country: US (occurrence: US)
  Receive Date: 20191226
  Receipt Date: 20191226
  Transmission Date: 20200122
  Serious: No
  Sender: FDA-Public Use
  Company Number: US-009507513-1912USA010681

PATIENT
  Sex: Female

DRUGS (1)
  1. NEXPLANON [Suspect]
     Active Substance: ETONOGESTREL
     Indication: CONTRACEPTION
     Dosage: ONCE
     Route: 059
     Dates: start: 20171104

REACTIONS (3)
  - Menstruation irregular [Unknown]
  - Weight decreased [Unknown]
  - Polymenorrhoea [Unknown]
